FAERS Safety Report 4380507-6 (Version None)
Quarter: 2004Q2

REPORT INFORMATION
  Report Type: 
  Country: None (occurrence: None)
  Receive Date: 20040614
  Receipt Date: 20040607
  Transmission Date: 20050107
  Serious: Yes (Death)
  Sender: FDA-Public Use
  Company Number: A400321001/LB-04-003

PATIENT
  Age: 45 Year
  Sex: Male

DRUGS (1)
  1. LABETALOL INJECTION, UNK, AKORN/BAXTER [Suspect]
     Indication: HIP ARTHROPLASTY
     Dosage: 25 MG, IV
     Route: 042

REACTIONS (2)
  - CARDIAC ARREST [None]
  - EMBOLISM [None]
